FAERS Safety Report 4835843-3 (Version None)
Quarter: 2005Q4

REPORT INFORMATION
  Report Type: 
  Country: None (occurrence: None)
  Receive Date: 20051117
  Receipt Date: 20051101
  Transmission Date: 20060501
  Serious: Yes (Hospitalization, Other)
  Sender: FDA-Public Use
  Company Number: US157361

PATIENT
  Age: 54 Year
  Sex: Male

DRUGS (1)
  1. ENBREL [Suspect]
     Indication: RHEUMATOID ARTHRITIS
     Dosage: 25 MG, 2 IN 1 WEEKS, SC
     Route: 058
     Dates: start: 20011101, end: 20020901

REACTIONS (10)
  - ARTHRITIS [None]
  - CULTURE URINE POSITIVE [None]
  - DISEASE RECURRENCE [None]
  - DIVERTICULUM INTESTINAL [None]
  - ENTEROVESICAL FISTULA [None]
  - ESCHERICHIA INFECTION [None]
  - EXCESSIVE GRANULATION TISSUE [None]
  - HAEMATURIA [None]
  - HAEMOGLOBIN DECREASED [None]
  - URETHRAL DISORDER [None]
